FAERS Safety Report 6521443-6 (Version None)
Quarter: 2009Q4

REPORT INFORMATION
  Report Type: 
  Country: None (occurrence: None)
  Receive Date: 20091222
  Receipt Date: 20091215
  Transmission Date: 20100525
  Serious: Yes (Hospitalization, Disabling)
  Sender: FDA-Public Use
  Company Number: 2009SP037024

PATIENT
  Age: 52 Year
  Sex: Male

DRUGS (4)
  1. PEG-INTRON [Suspect]
     Indication: HEPATITIS C
     Dosage: 120 MCG; QW;
     Dates: start: 20090527, end: 20091001
  2. REBETOL [Suspect]
     Indication: HEPATITIS C
     Dosage: 800 MG; QD;
     Dates: start: 20090527, end: 20091001
  3. IBUPROFEN [Concomitant]
  4. SULPIRIDE [Concomitant]

REACTIONS (2)
  - GENERAL PHYSICAL HEALTH DETERIORATION [None]
  - RAYNAUD'S PHENOMENON [None]
